FAERS Safety Report 19191112 (Version 3)
Quarter: 2021Q3

REPORT INFORMATION
  Report Type: Spontaneous
  Country: US (occurrence: US)
  Receive Date: 20210429
  Receipt Date: 20210705
  Transmission Date: 20211014
  Serious: No
  Sender: FDA-Public Use
  Company Number: US-SA-2021SA129559

PATIENT
  Age: 53 Year
  Sex: Male

DRUGS (2)
  1. ADMELOG [Suspect]
     Active Substance: INSULIN LISPRO
     Indication: TYPE 2 DIABETES MELLITUS
     Dosage: 35 UNITS AM, 5 IN THE AFTERNOON, 25 AT NIGHT
     Route: 065
     Dates: start: 20210413, end: 202104
  2. ADMELOG [Suspect]
     Active Substance: INSULIN LISPRO
     Dosage: UNK (DOSE INCREASED)
     Dates: start: 20210415

REACTIONS (1)
  - Blood glucose increased [Unknown]

NARRATIVE: CASE EVENT DATE: 20210415
